FAERS Safety Report 11317297 (Version 1)
Quarter: 2015Q3

REPORT INFORMATION
  Report Type: Spontaneous
  Country: US (occurrence: None)
  Receive Date: 20150727
  Receipt Date: 20150727
  Transmission Date: 20151125
  Serious: Yes (Hospitalization)
  Sender: FDA-Public Use
  Company Number: None

PATIENT
  Age: 21 Year
  Sex: Male

DRUGS (1)
  1. LAMOTRIGINE. [Suspect]
     Active Substance: LAMOTRIGINE
     Indication: BIPOLAR DISORDER
     Route: 048
     Dates: start: 20150506, end: 20150527

REACTIONS (7)
  - Dysphagia [None]
  - Pyrexia [None]
  - Pain [None]
  - Rash [None]
  - Lip dry [None]
  - Oral disorder [None]
  - Burning sensation [None]

NARRATIVE: CASE EVENT DATE: 20150527
